FAERS Safety Report 6805146-6 (Version None)
Quarter: 2010Q2

REPORT INFORMATION
  Report Type: 
  Country: None (occurrence: None)
  Receive Date: 20100628
  Receipt Date: 20071030
  Transmission Date: 20101027
  Serious: No
  Sender: FDA-Public Use
  Company Number: US-PFIZER INC-2007075934

PATIENT
  Sex: Female

DRUGS (4)
  1. GEODON [Suspect]
     Indication: DEPRESSION
     Route: 048
     Dates: start: 20070528, end: 20070805
  2. SELEGILINE [Suspect]
     Indication: DEPRESSION
     Route: 061
     Dates: start: 20070514
  3. ABILIFY [Suspect]
     Indication: DEPRESSION
     Dates: start: 20070528
  4. LAMICTAL [Suspect]

REACTIONS (6)
  - CELLULITIS [None]
  - DRY MOUTH [None]
  - ERYTHEMA [None]
  - FATIGUE [None]
  - OEDEMA [None]
  - OEDEMA PERIPHERAL [None]
